FAERS Safety Report 10699290 (Version 2)
Quarter: 2015Q1

REPORT INFORMATION
  Report Type: Report from Study
  Country: CL (occurrence: CL)
  Receive Date: 20150108
  Receipt Date: 20150123
  Transmission Date: 20150721
  Serious: Yes (Hospitalization)
  Sender: FDA-Public Use
  Company Number: CL-ABBVIE-15K-034-1330026-00

PATIENT
  Age: 20 Year
  Sex: Female
  Weight: 55 kg

DRUGS (2)
  1. MYCOPHENOLATE [Concomitant]
     Active Substance: MYCOPHENOLIC ACID
     Indication: CROHN^S DISEASE
     Dosage: 4 TABLETS/DAY
     Route: 048
     Dates: start: 201212
  2. HUMIRA [Suspect]
     Active Substance: ADALIMUMAB
     Indication: CROHN^S DISEASE
     Route: 058
     Dates: start: 20141222, end: 20141222

REACTIONS (2)
  - Gastrointestinal disorder [Not Recovered/Not Resolved]
  - Small intestine operation [Unknown]

NARRATIVE: CASE EVENT DATE: 20150102
